FAERS Safety Report 8195636-9 (Version None)
Quarter: 2012Q1

REPORT INFORMATION
  Report Type: 
  Country: None (occurrence: None)
  Receive Date: 20120308
  Receipt Date: 20120305
  Transmission Date: 20120608
  Serious: Yes (Other)
  Sender: FDA-Public Use
  Company Number: US-PFIZER INC-2012059719

PATIENT

DRUGS (2)
  1. OXYCONTIN [Concomitant]
     Dosage: UNK
  2. LYRICA [Suspect]
     Dosage: UNK

REACTIONS (4)
  - SURGERY [None]
  - NEUROPATHY PERIPHERAL [None]
  - NERVE INJURY [None]
  - PAIN [None]
